FAERS Safety Report 14795276 (Version 2)
Quarter: 2019Q1

REPORT INFORMATION
  Report Type: Spontaneous
  Country: US (occurrence: US)
  Receive Date: 20180423
  Receipt Date: 20190220
  Transmission Date: 20190417
  Serious: Yes (Other)
  Sender: FDA-Public Use
  Company Number: US-ASTRAZENECA-2018SE52928

PATIENT
  Sex: Male

DRUGS (25)
  1. DEXILANT [Suspect]
     Active Substance: DEXLANSOPRAZOLE
     Route: 065
  2. AMITIZA [Concomitant]
     Active Substance: LUBIPROSTONE
  3. NEXIUM 24HR [Suspect]
     Active Substance: ESOMEPRAZOLE MAGNESIUM
     Route: 048
  4. BIOTIN [Concomitant]
     Active Substance: BIOTIN
  5. PRILOSEC OTC [Suspect]
     Active Substance: OMEPRAZOLE MAGNESIUM
     Route: 048
  6. AMLODIPINE [Concomitant]
     Active Substance: AMLODIPINE BESYLATE
  7. TRAMADOL. [Concomitant]
     Active Substance: TRAMADOL
  8. IBUPROFEN. [Concomitant]
     Active Substance: IBUPROFEN
  9. PRILOSEC [Suspect]
     Active Substance: OMEPRAZOLE MAGNESIUM
     Route: 048
  10. PREVACID [Suspect]
     Active Substance: LANSOPRAZOLE
     Route: 048
     Dates: start: 2017, end: 2019
  11. LEVOTHYROXINE. [Concomitant]
     Active Substance: LEVOTHYROXINE
  12. NORVASC [Concomitant]
     Active Substance: AMLODIPINE BESYLATE
  13. CEPHALEXIN. [Concomitant]
     Active Substance: CEPHALEXIN
  14. CYANOCOBALAMIN. [Concomitant]
     Active Substance: CYANOCOBALAMIN
  15. VASCEPA [Concomitant]
     Active Substance: ICOSAPENT ETHYL
  16. PROTONIX [Suspect]
     Active Substance: PANTOPRAZOLE SODIUM
     Route: 065
  17. ACIPHEX [Suspect]
     Active Substance: RABEPRAZOLE SODIUM
     Route: 048
  18. ULORIC [Concomitant]
     Active Substance: FEBUXOSTAT
  19. BENZONATATE. [Concomitant]
     Active Substance: BENZONATATE
  20. COLCHICINE. [Concomitant]
     Active Substance: COLCHICINE
  21. NEXIUM [Suspect]
     Active Substance: ESOMEPRAZOLE MAGNESIUM
     Route: 048
     Dates: start: 2017, end: 2019
  22. PREVACID 24 HR [Suspect]
     Active Substance: LANSOPRAZOLE
     Route: 065
  23. PREDNISONE. [Concomitant]
     Active Substance: PREDNISONE
  24. NEXIUM [Suspect]
     Active Substance: ESOMEPRAZOLE MAGNESIUM
     Route: 048
     Dates: start: 20160812
  25. ASPIRIN. [Concomitant]
     Active Substance: ASPIRIN

REACTIONS (5)
  - End stage renal disease [Unknown]
  - Renal failure [Unknown]
  - Acute kidney injury [Unknown]
  - Tubulointerstitial nephritis [Unknown]
  - Chronic kidney disease [Unknown]
